FAERS Safety Report 6901802-X (Version None)
Quarter: 2010Q3

REPORT INFORMATION
  Report Type: 
  Country: None (occurrence: None)
  Receive Date: 20100803
  Receipt Date: 20080315
  Transmission Date: 20110219
  Serious: No
  Sender: FDA-Public Use
  Company Number: US-PFIZER INC-2008024660

PATIENT
  Sex: Female
  Weight: 90.909 kg

DRUGS (6)
  1. LYRICA [Suspect]
     Indication: FIBROMYALGIA
     Dates: start: 20080305
  2. AMITRIPTYLINE HYDROCHLORIDE [Concomitant]
  3. TIZANIDINE HCL [Concomitant]
  4. TOPAMAX [Concomitant]
  5. REQUIP [Concomitant]
  6. TRAMADOL HYDROCHLORIDE [Concomitant]

REACTIONS (2)
  - CHEILITIS [None]
  - MOUTH INJURY [None]
